FAERS Safety Report 16005302 (Version 5)
Quarter: 2021Q4

REPORT INFORMATION
  Report Type: Spontaneous
  Country: US (occurrence: US)
  Receive Date: 20190226
  Receipt Date: 20211019
  Transmission Date: 20220303
  Serious: Yes (Other)
  Sender: FDA-Public Use
  Company Number: US-PFIZER INC-2019083066

PATIENT
  Age: 68 Year
  Sex: Female
  Weight: 74.84 kg

DRUGS (1)
  1. XELJANZ XR [Suspect]
     Active Substance: TOFACITINIB CITRATE
     Indication: Rheumatoid arthritis
     Dosage: 11 MG, 1X/DAY
     Route: 048

REACTIONS (4)
  - Hip fracture [Unknown]
  - Herpes zoster [Unknown]
  - Visual impairment [Not Recovered/Not Resolved]
  - Renal disorder [Unknown]
